FAERS Safety Report 7576754-2 (Version None)
Quarter: 2011Q2

REPORT INFORMATION
  Report Type: 
  Country: None (occurrence: None)
  Receive Date: 20110628
  Receipt Date: 20110614
  Transmission Date: 20111010
  Serious: Yes (Other)
  Sender: FDA-Public Use
  Company Number: US-BAYER-2011-035155

PATIENT
  Age: 21 Year
  Sex: Female
  Weight: 83.9 kg

DRUGS (3)
  1. NSAID'S [Concomitant]
  2. YASMIN [Suspect]
     Indication: CONTRACEPTION
     Dosage: UNK
     Dates: start: 20070313, end: 20090401
  3. LEVSIN [Concomitant]

REACTIONS (5)
  - CHOLECYSTITIS CHRONIC [None]
  - OEDEMA PERIPHERAL [None]
  - ABDOMINAL PAIN UPPER [None]
  - CHOLELITHIASIS [None]
  - PAIN IN EXTREMITY [None]
